FAERS Safety Report 12738243 (Version 2)
Quarter: 2018Q2

REPORT INFORMATION
  Report Type: Spontaneous
  Country: US (occurrence: US)
  Receive Date: 20160912
  Receipt Date: 20180515
  Transmission Date: 20180711
  Serious: No
  Sender: FDA-Public Use
  Company Number: US-SA-2016SA125925

PATIENT
  Age: 36 Year
  Sex: Female

DRUGS (3)
  1. SOLOSTAR [Suspect]
     Active Substance: DEVICE
     Indication: DIABETES MELLITUS
     Dates: start: 201606
  2. LANTUS [Concomitant]
     Active Substance: INSULIN GLARGINE
     Dosage: 21 UNITS IN THE MORNING AND 14 IN THE EVENING
     Route: 065
  3. TOUJEO [Suspect]
     Active Substance: INSULIN GLARGINE
     Indication: DIABETES MELLITUS
     Dosage: DOSE: 22UNITS, 15 UNITS
     Route: 065
     Dates: start: 201606

REACTIONS (3)
  - Product use issue [Unknown]
  - Wrong technique in device usage process [Unknown]
  - Myalgia [Unknown]

NARRATIVE: CASE EVENT DATE: 2016
